FAERS Safety Report 16291503 (Version 1)
Quarter: 2019Q2

REPORT INFORMATION
  Report Type: Report from Study
  Country: None (occurrence: CA)
  Receive Date: 20190509
  Receipt Date: 20190509
  Transmission Date: 20190711
  Serious: Yes (Other)
  Sender: FDA-Public Use
  Company Number: CA-ABBVIE-19S-028-2774360-00

PATIENT
  Age: 47 Year
  Sex: Female

DRUGS (1)
  1. LUPRON DEPOT [Suspect]
     Active Substance: LEUPROLIDE ACETATE
     Indication: UTERINE LEIOMYOMA
     Route: 030

REACTIONS (4)
  - Oophorectomy [Unknown]
  - Salpingectomy [Unknown]
  - Hysterectomy [Unknown]
  - Vein disorder [Unknown]

NARRATIVE: CASE EVENT DATE: 20190429
